FAERS Safety Report 6130739-1 (Version None)
Quarter: 2009Q1

REPORT INFORMATION
  Report Type: 
  Country: None (occurrence: None)
  Receive Date: 20090323
  Receipt Date: 20090308
  Transmission Date: 20090719
  Serious: Yes (Other)
  Sender: FDA-Public Use
  Company Number: 2007S1006588

PATIENT
  Age: 63 Year
  Sex: Female
  Weight: 70.3075 kg

DRUGS (9)
  1. PHOSPHOSODA FLAVOR NOT SPECIFIED [Suspect]
     Indication: COLONOSCOPY
     Dosage: 135 ML; TOTAL; PO
     Route: 048
     Dates: start: 20060301, end: 20060301
  2. HYOSCIAMINE [Concomitant]
  3. SINGULAIR [Concomitant]
  4. PRINIVIL /00894001/ [Concomitant]
  5. INDAPRIMIDE [Concomitant]
  6. CLIMARA [Concomitant]
  7. ADVAIR HFA [Concomitant]
  8. ASPIRIN [Concomitant]
  9. PHOSPH-SODA [Concomitant]

REACTIONS (4)
  - DRUG TOXICITY [None]
  - HYPERPHOSPHATAEMIA [None]
  - RENAL FAILURE ACUTE [None]
  - RENAL FAILURE CHRONIC [None]
